FAERS Safety Report 5586091-3 (Version None)
Quarter: 2007Q4

REPORT INFORMATION
  Report Type: 
  Country: None (occurrence: None)
  Receive Date: 20071205
  Receipt Date: 20070228
  Transmission Date: 20080405
  Serious: Yes (Other)
  Sender: FDA-Public Use
  Company Number: HQWYE264201MAR07

PATIENT
  Age: 38 Year
  Sex: Female
  Weight: 87.62 kg

DRUGS (6)
  1. EFFEXOR XR [Suspect]
     Indication: DEPRESSION
     Dosage: 225 MG 1X PER 1 DAY, ORAL ; 450 MG 1X PER 1 DAY, ORAL
     Route: 048
     Dates: start: 20041201, end: 20070213
  2. EFFEXOR XR [Suspect]
     Indication: DEPRESSION
     Dosage: 225 MG 1X PER 1 DAY, ORAL ; 450 MG 1X PER 1 DAY, ORAL
     Route: 048
     Dates: start: 20070214
  3. LIPITOR [Concomitant]
  4. LEVOTHYROXINE SODIUM [Concomitant]
  5. NEXIUM [Concomitant]
  6. TOPAMAX [Concomitant]

REACTIONS (7)
  - ANOREXIA [None]
  - BLOOD PRESSURE INCREASED [None]
  - HEADACHE [None]
  - HOT FLUSH [None]
  - PHOTOPHOBIA [None]
  - TREMOR [None]
  - WEIGHT INCREASED [None]
